FAERS Safety Report 22609121 (Version 1)
Quarter: 2023Q2

REPORT INFORMATION
  Report Type: Spontaneous
  Country: AU (occurrence: AU)
  Receive Date: 20230616
  Receipt Date: 20230616
  Transmission Date: 20230721
  Serious: Yes (Hospitalization)
  Sender: FDA-Public Use
  Company Number: AU-AMGEN-AUSSP2023101556

PATIENT
  Age: 72 Year
  Sex: Female

DRUGS (3)
  1. PROLIA [Suspect]
     Active Substance: DENOSUMAB
     Indication: Osteoporosis
     Dosage: UNK, Q6MO
     Route: 065
     Dates: start: 2015
  2. FLECAINIDE [Concomitant]
     Active Substance: FLECAINIDE
     Dosage: UNK
  3. APIXABAN [Concomitant]
     Active Substance: APIXABAN

REACTIONS (6)
  - Throat tightness [Unknown]
  - Chest pain [Unknown]
  - Dyspnoea [Unknown]
  - Muscle spasms [Unknown]
  - Blood pressure abnormal [Unknown]
  - Bone density decreased [Unknown]

NARRATIVE: CASE EVENT DATE: 20230101
